FAERS Safety Report 22917049 (Version 5)
Quarter: 2025Q1

REPORT INFORMATION
  Report Type: Other
  Country: US (occurrence: US)
  Receive Date: 20230907
  Receipt Date: 20250221
  Transmission Date: 20250409
  Serious: Yes (Other)
  Sender: TRAVERE THERAPEUTICS
  Company Number: US-TRAVERE-2023TVT00317

PATIENT
  Age: 42 Year
  Sex: Female

DRUGS (2)
  1. FILSPARI [Suspect]
     Active Substance: SPARSENTAN
     Indication: IgA nephropathy
     Route: 048
  2. FILSPARI [Suspect]
     Active Substance: SPARSENTAN
     Route: 048

REACTIONS (8)
  - Facial paralysis [None]
  - Dizziness [Recovered/Resolved]
  - Thirst [Unknown]
  - Hyperchlorhydria [Unknown]
  - Product prescribing error [Unknown]
  - Inappropriate schedule of product administration [Unknown]
  - Bone pain [Unknown]
  - Protein urine present [Unknown]

NARRATIVE: CASE EVENT DATE: 20241201
